FAERS Safety Report 7983746-8 (Version None)
Quarter: 2011Q4

REPORT INFORMATION
  Report Type: 
  Country: None (occurrence: None)
  Receive Date: 20111215
  Receipt Date: 20111206
  Transmission Date: 20120403
  Serious: Yes (Other)
  Sender: FDA-Public Use
  Company Number: US-BAXTER-2011BH031666

PATIENT
  Age: 63 Year
  Sex: Female

DRUGS (7)
  1. NEURONTIN [Suspect]
     Indication: ARTHRALGIA
     Route: 048
  2. VIVELLE-DOT [Suspect]
     Indication: HORMONE REPLACEMENT THERAPY
     Route: 062
  3. PLAQUENIL [Suspect]
     Indication: AUTOIMMUNE DISORDER
     Route: 048
  4. IMMUNE GLOBULIN INTRAVENOUS (HUMAN) [Suspect]
     Indication: COMBINED IMMUNODEFICIENCY
     Route: 058
     Dates: start: 20100601, end: 20111001
  5. MOBIC [Suspect]
     Indication: PRODUCT USED FOR UNKNOWN INDICATION
     Route: 048
  6. KLONOPIN [Suspect]
     Indication: RESTLESS LEGS SYNDROME
     Route: 048
  7. GAMMAGARD LIQUID [Suspect]
     Indication: COMBINED IMMUNODEFICIENCY
     Route: 058
     Dates: start: 20111002, end: 20111006

REACTIONS (19)
  - OCULAR HYPERAEMIA [None]
  - PETECHIAE [None]
  - MUSCULOSKELETAL STIFFNESS [None]
  - ARTHROPATHY [None]
  - COUGH [None]
  - URTICARIA [None]
  - DYSPHONIA [None]
  - EYE IRRITATION [None]
  - OROPHARYNGEAL BLISTERING [None]
  - OEDEMA MUCOSAL [None]
  - PAIN IN EXTREMITY [None]
  - FEELING HOT [None]
  - PYREXIA [None]
  - ARTHRALGIA [None]
  - ERYTHEMA [None]
  - GENITAL SWELLING [None]
  - BLISTER [None]
  - LYMPH NODE PAIN [None]
  - RASH [None]
